FAERS Safety Report 25964526 (Version 1)
Quarter: 2025Q4

REPORT INFORMATION
  Report Type: Report from Study
  Country: US (occurrence: US)
  Receive Date: 20251027
  Receipt Date: 20251027
  Transmission Date: 20260118
  Serious: Yes (Hospitalization)
  Sender: JOHNSON AND JOHNSON
  Company Number: US-JNJFOC-20250610324

PATIENT
  Age: 69 Year
  Sex: Male

DRUGS (14)
  1. UPTRAVI [Suspect]
     Active Substance: SELEXIPAG
     Indication: Pulmonary arterial hypertension
     Dosage: 1000MCG TWO TIMES DAILY ALONG WITH 200 MCG IN THE EVENING
     Route: 048
     Dates: start: 202501
  2. UPTRAVI [Suspect]
     Active Substance: SELEXIPAG
     Route: 048
  3. UPTRAVI [Suspect]
     Active Substance: SELEXIPAG
     Dosage: 1000MCG TABLET IN THE MORNING + ONE 1000MCG TABLET ALONG WITH?ONE 200MCG TABLET IN THE EVENING FOR A
     Route: 048
  4. UPTRAVI [Suspect]
     Active Substance: SELEXIPAG
     Dosage: 1200MCG AT NIGHT AND 1000MCG DURING THE DAY
     Route: 048
     Dates: start: 202501
  5. UPTRAVI [Suspect]
     Active Substance: SELEXIPAG
     Dosage: 1200MCG AT NIGHT AND 1000MCG DURING THE DAY
     Route: 048
     Dates: start: 202501
  6. UPTRAVI [Suspect]
     Active Substance: SELEXIPAG
     Dosage: 1000MCG/200 MCG
     Route: 048
     Dates: start: 202503
  7. MACITENTAN\TADALAFIL [Suspect]
     Active Substance: MACITENTAN\TADALAFIL
     Indication: Pulmonary arterial hypertension
     Dosage: 10MG/40MG ONE PILL
     Route: 048
     Dates: start: 202407
  8. INFLUENZA VIRUS VACCINE [Concomitant]
     Active Substance: INFLUENZA VIRUS VACCINE
     Indication: Product used for unknown indication
  9. COVID-19 VACCINE [Concomitant]
     Indication: Product used for unknown indication
  10. INSULIN DEGLUDEC FLEXTOUCH [Concomitant]
     Indication: Diabetes mellitus
  11. PRAVASTATIN [Concomitant]
     Active Substance: PRAVASTATIN
     Indication: Blood cholesterol
  12. HYDROCHLOROTHIAZIDE\VALSARTAN [Concomitant]
     Active Substance: HYDROCHLOROTHIAZIDE\VALSARTAN
     Indication: Blood pressure measurement
  13. LASIX [Concomitant]
     Active Substance: FUROSEMIDE
     Indication: Product used for unknown indication
     Dates: start: 202407
  14. CEPHALEXIN [Concomitant]
     Active Substance: CEPHALEXIN
     Indication: Infection
     Dates: start: 2018

REACTIONS (6)
  - Pain [Unknown]
  - Dyspnoea exertional [Unknown]
  - Headache [Not Recovered/Not Resolved]
  - Myalgia [Not Recovered/Not Resolved]
  - Chest discomfort [Recovering/Resolving]
  - Peripheral swelling [Recovered/Resolved]
